FAERS Safety Report 8767363 (Version 3)
Quarter: 2013Q1

REPORT INFORMATION
  Report Type: Spontaneous
  Country: JP (occurrence: JP)
  Receive Date: 20120904
  Receipt Date: 20130220
  Transmission Date: 20140127
  Serious: Yes (Life-Threatening, Hospitalization)
  Sender: FDA-Public Use
  Company Number: JP-JNJFOC-20120900205

PATIENT
  Age: 85 Year
  Sex: Male
  Weight: 55 kg

DRUGS (17)
  1. REMINYL [Suspect]
     Indication: DEMENTIA ALZHEIMER^S TYPE
     Route: 048
     Dates: start: 20120813, end: 20120816
  2. MECOBALAMIN [Concomitant]
     Route: 048
  3. BUCILLAMINE [Concomitant]
     Indication: RHEUMATOID ARTHRITIS
     Route: 048
  4. THEOPHYLLINE [Concomitant]
     Indication: ASTHMA
     Route: 048
  5. EPALRESTAT [Concomitant]
     Indication: DIABETIC NEUROPATHY
     Route: 048
  6. BENIDIPINE HYDROCHLORIDE [Concomitant]
     Indication: HYPERTENSION
     Route: 048
  7. PARIET [Concomitant]
     Dosage: ENTERIC COATING DRUG
     Route: 048
  8. PREDONINE [Concomitant]
     Route: 048
  9. CALFINA [Concomitant]
     Route: 048
  10. FUROSEMIDE [Concomitant]
     Indication: HYPERTENSION
     Route: 048
  11. MICARDIS [Concomitant]
     Indication: HYPERTENSION
     Route: 048
  12. COROHERSER [Concomitant]
     Indication: PRINZMETAL ANGINA
     Route: 048
  13. LOXOPROFEN [Concomitant]
     Indication: CERVICAL MYELOPATHY
     Route: 048
  14. REBAMIPIDE [Concomitant]
     Route: 048
  15. TERBINAFINE [Concomitant]
     Indication: ONYCHOMYCOSIS
     Route: 048
  16. METHOTREXATE [Concomitant]
     Indication: RHEUMATOID ARTHRITIS
     Route: 048
  17. HOKUNALIN [Concomitant]
     Indication: ASTHMA
     Route: 062

REACTIONS (2)
  - Suicide attempt [Recovered/Resolved]
  - Delirium [Recovered/Resolved]
